FAERS Safety Report 5731804-0 (Version None)
Quarter: 2008Q2

REPORT INFORMATION
  Report Type: 
  Country: None (occurrence: None)
  Receive Date: 20080506
  Receipt Date: 20080422
  Transmission Date: 20081010
  Serious: Yes (Death)
  Sender: FDA-Public Use
  Company Number: 2008000847

PATIENT
  Age: 61 Year
  Sex: Female

DRUGS (4)
  1. ERLOTINIB (ERLOTINIB HCL) (TABLET) (ERLOTINIB HCL) [Suspect]
     Indication: LUNG ADENOCARCINOMA
     Dosage: (150 MG, QD), ORAL
     Route: 048
     Dates: start: 20080311, end: 20080323
  2. MAGNESIUM OXIDE (MAGNESIUM OXIDE) [Concomitant]
  3. MORPHINE [Concomitant]
  4. ROPION (FLURBIPROFEN AXETIL) [Concomitant]

REACTIONS (4)
  - ANAEMIA [None]
  - BLOOD BILIRUBIN INCREASED [None]
  - HAEMOPTYSIS [None]
  - HAEMORRHAGE [None]
